FAERS Safety Report 18155233 (Version 3)
Quarter: 2021Q3

REPORT INFORMATION
  Report Type: Spontaneous
  Country: US (occurrence: US)
  Receive Date: 20200817
  Receipt Date: 20210903
  Transmission Date: 20211014
  Serious: No
  Sender: FDA-Public Use
  Company Number: US-ALLERGAN-2025857US

PATIENT
  Sex: Male

DRUGS (4)
  1. AQUAPHOR (XIPAMIDE) [Suspect]
     Active Substance: XIPAMIDE
     Indication: APPLICATION SITE REACTION
  2. AQUAPHOR (XIPAMIDE) [Suspect]
     Active Substance: XIPAMIDE
     Indication: APPLICATION SITE PRURITUS
  3. ANDRODERM [Suspect]
     Active Substance: TESTOSTERONE
     Indication: BLOOD TESTOSTERONE DECREASED
     Dosage: 1 DF, QD
     Route: 061
     Dates: start: 2007
  4. ANDRODERM [Suspect]
     Active Substance: TESTOSTERONE
     Indication: BLOOD TESTOSTERONE DECREASED
     Route: 061

REACTIONS (10)
  - Application site urticaria [Recovered/Resolved]
  - Product physical issue [Unknown]
  - Fatigue [Unknown]
  - Application site irritation [Unknown]
  - Dry throat [Unknown]
  - Skin exfoliation [Unknown]
  - Thyroid hormones decreased [Unknown]
  - Pruritus [Unknown]
  - Application site dryness [Unknown]
  - Drug ineffective [Unknown]
